FAERS Safety Report 6291498-5 (Version None)
Quarter: 2009Q3

REPORT INFORMATION
  Report Type: 
  Country: None (occurrence: None)
  Receive Date: 20090730
  Receipt Date: 20090629
  Transmission Date: 20100115
  Serious: No
  Sender: FDA-Public Use
  Company Number: US-BAYER-200925776NA

PATIENT
  Age: 69 Year
  Sex: Female

DRUGS (3)
  1. ULTRAVIST 300 [Suspect]
     Indication: COMPUTERISED TOMOGRAM ABDOMEN
     Dosage: TOTAL DAILY DOSE: 75 ML  UNIT DOSE: 200 ML
     Route: 042
     Dates: start: 20090629, end: 20090629
  2. CODEINE SUL TAB [Concomitant]
  3. FENTANYL TRANSDERMAL SYSTEM [Concomitant]

REACTIONS (1)
  - RASH [None]
